FAERS Safety Report 11821107 (Version 1)
Quarter: 2015Q4

REPORT INFORMATION
  Report Type: Spontaneous
  Country: US (occurrence: US)
  Receive Date: 20151210
  Receipt Date: 20151210
  Transmission Date: 20160305
  Serious: No
  Sender: FDA-Public Use
  Company Number: US-JNJFOC-20150718910

PATIENT
  Age: 79 Year
  Sex: Male

DRUGS (17)
  1. TAMSULOSIN HCL [Concomitant]
     Active Substance: TAMSULOSIN
  2. CLONIDINE. [Concomitant]
     Active Substance: CLONIDINE
  3. HUMALOG [Concomitant]
     Active Substance: INSULIN LISPRO
  4. CLOPIDOGREL [Concomitant]
     Active Substance: CLOPIDOGREL BISULFATE
  5. SYNTHROID [Concomitant]
     Active Substance: LEVOTHYROXINE SODIUM
  6. IMBRUVICA [Suspect]
     Active Substance: IBRUTINIB
     Indication: MANTLE CELL LYMPHOMA
     Route: 048
     Dates: start: 20150624, end: 20150701
  7. COREG [Concomitant]
     Active Substance: CARVEDILOL
  8. POTASSIUM CHLORIDE. [Concomitant]
     Active Substance: POTASSIUM CHLORIDE
  9. LANTUS [Concomitant]
     Active Substance: INSULIN GLARGINE
  10. RANEXA [Concomitant]
     Active Substance: RANOLAZINE
  11. SERTRALINE [Concomitant]
     Active Substance: SERTRALINE HYDROCHLORIDE
  12. ASPIRIN. [Concomitant]
     Active Substance: ASPIRIN
  13. DONEPEZIL. [Concomitant]
     Active Substance: DONEPEZIL
  14. SIMVASTATIN. [Concomitant]
     Active Substance: SIMVASTATIN
  15. VITAMIN D [Concomitant]
     Active Substance: CHOLECALCIFEROL
  16. LOSARTAN. [Concomitant]
     Active Substance: LOSARTAN
  17. VITAMIN B12 [Concomitant]
     Active Substance: CYANOCOBALAMIN

REACTIONS (6)
  - Asthenia [Not Recovered/Not Resolved]
  - Pus in stool [Recovering/Resolving]
  - Pain [Recovered/Resolved]
  - Headache [Recovered/Resolved]
  - Faeces discoloured [Recovering/Resolving]
  - Diarrhoea [Not Recovered/Not Resolved]

NARRATIVE: CASE EVENT DATE: 201506
